FAERS Safety Report 20988394 (Version 1)
Quarter: 2022Q2

REPORT INFORMATION
  Report Type: Spontaneous
  Country: US (occurrence: None)
  Receive Date: 20220620
  Receipt Date: 20220620
  Transmission Date: 20220721
  Serious: Yes (Other)
  Sender: FDA-Public Use
  Company Number: None

PATIENT
  Sex: Male
  Weight: 69.75 kg

DRUGS (5)
  1. LINZESS [Suspect]
     Active Substance: LINACLOTIDE
     Indication: Constipation
  2. LEVOTHYROXINE [Concomitant]
     Active Substance: LEVOTHYROXINE
  3. LINZESS [Concomitant]
     Active Substance: LINACLOTIDE
  4. IRBESARTAN [Concomitant]
     Active Substance: IRBESARTAN
  5. AMLODIPINE [Concomitant]
     Active Substance: AMLODIPINE BESYLATE

REACTIONS (1)
  - Blood creatinine increased [None]
